FAERS Safety Report 25813216 (Version 1)
Quarter: 2025Q3

REPORT INFORMATION
  Report Type: Spontaneous
  Country: EU (occurrence: EU)
  Receive Date: 20250917
  Receipt Date: 20250917
  Transmission Date: 20251021
  Serious: Yes (Life-Threatening)
  Sender: PFIZER
  Company Number: None

PATIENT
  Age: 10 Year
  Sex: Female

DRUGS (1)
  1. METHOTREXATE [Suspect]
     Active Substance: METHOTREXATE
     Indication: Osteosarcoma metastatic
     Route: 042
     Dates: start: 20250827, end: 20250827

REACTIONS (4)
  - Hepatotoxicity [Recovering/Resolving]
  - Nephropathy toxic [Recovering/Resolving]
  - Renal impairment [Recovering/Resolving]
  - Bleeding time prolonged [Recovering/Resolving]

NARRATIVE: CASE EVENT DATE: 20250827
